FAERS Safety Report 14284987 (Version 5)
Quarter: 2019Q1

REPORT INFORMATION
  Report Type: Report from Study
  Country: DE (occurrence: DE)
  Receive Date: 20171214
  Receipt Date: 20190311
  Transmission Date: 20190417
  Serious: Yes (Other)
  Sender: FDA-Public Use
  Company Number: DE-ACCORD-061962

PATIENT
  Age: 57 Year
  Sex: Female

DRUGS (3)
  1. DOCETAXEL. [Suspect]
     Active Substance: DOCETAXEL
     Indication: BREAST CANCER METASTATIC
     Dosage: Q3W (123-124.5)
     Route: 042
     Dates: start: 20170920
  2. HERCEPTIN [Suspect]
     Active Substance: TRASTUZUMAB
     Indication: BREAST CANCER
     Dosage: 480 MG, Q3W
     Route: 042
     Dates: start: 20170920
  3. PERTUZUMAB. [Suspect]
     Active Substance: PERTUZUMAB
     Indication: BREAST CANCER METASTATIC
     Dosage: 420 MG, Q3W
     Route: 042
     Dates: start: 20170920

REACTIONS (23)
  - Diarrhoea [Recovered/Resolved]
  - Abdominal pain upper [Recovered/Resolved]
  - Muscle spasms [Recovered/Resolved]
  - Rash [Not Recovered/Not Resolved]
  - Insomnia [Recovered/Resolved]
  - Pain of skin [Not Recovered/Not Resolved]
  - Eyelid oedema [Recovered/Resolved]
  - Dry mouth [Not Recovered/Not Resolved]
  - Flushing [Recovered/Resolved]
  - Dyspnoea [Not Recovered/Not Resolved]
  - Onycholysis [Not Recovered/Not Resolved]
  - Stomatitis [Recovered/Resolved]
  - Pain in extremity [Recovered/Resolved]
  - Nasopharyngitis [Recovered/Resolved]
  - Hot flush [Not Recovered/Not Resolved]
  - Onychalgia [Not Recovered/Not Resolved]
  - Nausea [Recovered/Resolved]
  - Oedema [Not Recovered/Not Resolved]
  - Arthralgia [Recovered/Resolved with Sequelae]
  - Tinnitus [Recovered/Resolved]
  - Vulvovaginal dryness [Not Recovered/Not Resolved]
  - Peripheral sensory neuropathy [Not Recovered/Not Resolved]
  - Panophthalmitis [Not Recovered/Not Resolved]

NARRATIVE: CASE EVENT DATE: 20170925
